FAERS Safety Report 16897480 (Version 1)
Quarter: 2019Q4

REPORT INFORMATION
  Report Type: Spontaneous
  Country: US (occurrence: US)
  Receive Date: 20191009
  Receipt Date: 20191009
  Transmission Date: 20200122
  Serious: No
  Sender: FDA-Public Use
  Company Number: US-SHIRE-US201933007

PATIENT
  Sex: Female

DRUGS (1)
  1. HYQVIA [Suspect]
     Active Substance: HUMAN IMMUNOGLOBULIN G\HYALURONIDASE RECOMBINANT HUMAN
     Indication: IMMUNODEFICIENCY COMMON VARIABLE
     Dosage: 10 GRAM, 1X/2WKS
     Route: 058
     Dates: start: 20190903, end: 20190924

REACTIONS (7)
  - Fatigue [Unknown]
  - Infusion site erythema [Unknown]
  - Nausea [Unknown]
  - Pyrexia [Unknown]
  - Infusion site warmth [Unknown]
  - Infusion site pain [Unknown]
  - Headache [Unknown]
